FAERS Safety Report 8126529-0 (Version None)
Quarter: 2012Q1

REPORT INFORMATION
  Report Type: 
  Country: None (occurrence: None)
  Receive Date: 20120210
  Receipt Date: 20120202
  Transmission Date: 20120608
  Serious: Yes (Hospitalization)
  Sender: FDA-Public Use
  Company Number: NL-AMGEN-NLDSP2011038775

PATIENT
  Sex: Female

DRUGS (14)
  1. ENBREL [Suspect]
     Indication: RHEUMATOID ARTHRITIS
     Dosage: 50 MG, WEEKLY
     Dates: start: 20060101
  2. METFORMIN HCL [Concomitant]
     Dosage: UNK
  3. ZANTAC [Concomitant]
     Dosage: UNK
  4. MODALIM [Concomitant]
     Dosage: UNK
  5. HYDROCHLOROTHIAZIDE [Concomitant]
     Dosage: UNK
  6. FOLIC ACID [Concomitant]
     Dosage: UNK
  7. CALCIUM [Concomitant]
     Dosage: UNK
  8. METHOTREXATE [Concomitant]
     Dosage: UNK
  9. METOCLOPRAMIDE [Concomitant]
     Dosage: UNK
  10. AERIUS                             /01398501/ [Concomitant]
     Dosage: UNK
  11. METAMUCIL                          /00029101/ [Concomitant]
     Dosage: UNK
  12. PREDNISONE [Concomitant]
     Dosage: UNK
  13. EZETIMIBE [Concomitant]
     Dosage: UNK
  14. SINTROM [Concomitant]
     Dosage: UNK

REACTIONS (4)
  - GASTROINTESTINAL DISORDER [None]
  - FAECES HARD [None]
  - WEIGHT DECREASED [None]
  - DIARRHOEA [None]
